FAERS Safety Report 4630458-4 (Version None)
Quarter: 2005Q2

REPORT INFORMATION
  Report Type: 
  Country: None (occurrence: None)
  Receive Date: 20050405
  Receipt Date: 20050405
  Transmission Date: 20051028
  Serious: No
  Sender: FDA-Public Use
  Company Number: None

PATIENT
  Sex: Female
  Weight: 59 kg

DRUGS (1)
  1. INTERFERON-ALPHA [Suspect]
     Dosage: 9.0 MU SC 3X/WEEK, CYCLE = 4 WEEKS
     Route: 058
     Dates: start: 20050125

REACTIONS (4)
  - CEREBRAL ISCHAEMIA [None]
  - OXYGEN SATURATION DECREASED [None]
  - TRANSIENT ISCHAEMIC ATTACK [None]
  - VISUAL FIELD DEFECT [None]
